FAERS Safety Report 18639148 (Version 2)
Quarter: 2020Q4

REPORT INFORMATION
  Report Type: Other
  Country: GB (occurrence: GB)
  Receive Date: 20201219
  Receipt Date: 20201227
  Transmission Date: 20210114
  Serious: Yes (Death, Hospitalization)
  Sender: FDA-Public Use
  Company Number: NVSC2020GB335388

PATIENT

DRUGS (1)
  1. LUTATHERA [Suspect]
     Active Substance: LUTETIUM OXODOTREOTIDE LU-177
     Indication: PRODUCT USED FOR UNKNOWN INDICATION
     Dosage: UNK
     Route: 065

REACTIONS (5)
  - Decreased appetite [Unknown]
  - Jaundice [Unknown]
  - Malaise [Unknown]
  - Death [Fatal]
  - Dysuria [Unknown]

NARRATIVE: CASE EVENT DATE: 20201212
